FAERS Safety Report 6718654-3 (Version None)
Quarter: 2010Q2

REPORT INFORMATION
  Report Type: 
  Country: None (occurrence: None)
  Receive Date: 20100510
  Receipt Date: 20100427
  Transmission Date: 20101027
  Serious: Yes (Other)
  Sender: FDA-Public Use
  Company Number: JP-AMGEN-US347074

PATIENT
  Age: 66 Year
  Sex: Female

DRUGS (2)
  1. ENBREL [Suspect]
     Indication: RHEUMATOID ARTHRITIS
     Route: 058
     Dates: start: 20080101, end: 20090401
  2. RHEUMATREX [Suspect]
     Route: 048

REACTIONS (3)
  - DERMATITIS PSORIASIFORM [None]
  - PARONYCHIA [None]
  - STAPHYLOCOCCAL INFECTION [None]
